FAERS Safety Report 25888088 (Version 2)
Quarter: 2025Q4

REPORT INFORMATION
  Report Type: Spontaneous
  Country: BR (occurrence: BR)
  Receive Date: 20251007
  Receipt Date: 20251022
  Transmission Date: 20260117
  Serious: Yes (Other)
  Sender: BEIGENE
  Company Number: BR-BEIGENE-BGN-2025-017059

PATIENT
  Age: 73 Year

DRUGS (1)
  1. BRUKINSA [Suspect]
     Active Substance: ZANUBRUTINIB
     Indication: Marginal zone lymphoma
     Dosage: UNK

REACTIONS (2)
  - Disease progression [Unknown]
  - Drug ineffective [Unknown]
